FAERS Safety Report 4337317-5 (Version None)
Quarter: 2004Q2

REPORT INFORMATION
  Report Type: 
  Country: None (occurrence: None)
  Receive Date: 20040408
  Receipt Date: 20040326
  Transmission Date: 20050107
  Serious: Yes (Hospitalization)
  Sender: FDA-Public Use
  Company Number: 2004021476

PATIENT
  Age: 85 Year
  Sex: Female

DRUGS (2)
  1. NEURONTIN [Suspect]
     Indication: NEUROPATHIC PAIN
     Dosage: 1200 MG (TID)
  2. ASPIRIN [Concomitant]

REACTIONS (3)
  - MALAISE [None]
  - OXYGEN SATURATION DECREASED [None]
  - SYNCOPE VASOVAGAL [None]
